FAERS Safety Report 15927077 (Version 2)
Quarter: 2019Q1

REPORT INFORMATION
  Report Type: Spontaneous
  Country: CA (occurrence: CA)
  Receive Date: 20190206
  Receipt Date: 20190213
  Transmission Date: 20190417
  Serious: Yes (Life-Threatening, Hospitalization)
  Sender: FDA-Public Use
  Company Number: CA-PFIZER INC-2019050748

PATIENT
  Age: 18 Month
  Sex: Male

DRUGS (1)
  1. ADVIL PEDIATRIC DROPS [Suspect]
     Active Substance: IBUPROFEN
     Dosage: AS PER LABEL, EVERY 8 HOURS, TOTAL OF 13ML

REACTIONS (4)
  - Gastric ulcer [Recovering/Resolving]
  - Asthenia [Recovering/Resolving]
  - Epigastric discomfort [Recovering/Resolving]
  - Haemorrhage [Recovering/Resolving]
